FAERS Safety Report 5330470-6 (Version None)
Quarter: 2007Q2

REPORT INFORMATION
  Report Type: 
  Country: None (occurrence: None)
  Receive Date: 20070517
  Receipt Date: 20070511
  Transmission Date: 20071010
  Serious: Yes (Hospitalization, Disabling)
  Sender: FDA-Public Use
  Company Number: OSCN-GE-0703S-0141

PATIENT
  Age: 70 Year
  Sex: Female

DRUGS (4)
  1. OMNISCAN [Suspect]
     Indication: GRAND MAL CONVULSION
     Dosage: 10 ML, SINGLE DOSE, I.V.
     Route: 042
     Dates: start: 20020429, end: 20020429
  2. OMNISCAN [Suspect]
     Indication: RENAL ARTERY STENOSIS
     Dosage: 50 ML, SINCE DOSE, I.A.
     Route: 014
     Dates: start: 20020517, end: 20050517
  3. GADOPENTETATE DIMEGLUMINE (MAGNEVIST) [Concomitant]
  4. ACE INHIBITOR NOS [Concomitant]

REACTIONS (7)
  - CATHETER SEPSIS [None]
  - DIALYSIS [None]
  - ERYTHEMA [None]
  - PRURITUS [None]
  - RENAL ARTERY STENOSIS [None]
  - RENAL FAILURE ACUTE [None]
  - RENAL FAILURE CHRONIC [None]
